FAERS Safety Report 9641577 (Version 2)
Quarter: 2013Q4

REPORT INFORMATION
  Report Type: Spontaneous
  Country: IT (occurrence: IT)
  Receive Date: 20131023
  Receipt Date: 20131023
  Transmission Date: 20140711
  Serious: Yes (Other)
  Sender: FDA-Public Use
  Company Number: IT-ASTRAZENECA-2013SE66324

PATIENT
  Age: 940 Week
  Sex: Male

DRUGS (3)
  1. SYMBICORT [Suspect]
     Indication: INFLUENZA
     Dosage: 2 DF, ONCE A WEEK
     Route: 055
     Dates: start: 20130301, end: 20130419
  2. MOMENT [Suspect]
     Indication: INFLUENZA
     Route: 048
     Dates: start: 20130404, end: 20130407
  3. FLOMAX [Suspect]
     Indication: INFLUENZA
     Route: 048
     Dates: start: 20130404, end: 20130407

REACTIONS (1)
  - Gastritis erosive [Unknown]
